FAERS Safety Report 21541153 (Version 1)
Quarter: 2022Q4

REPORT INFORMATION
  Report Type: Spontaneous
  Country: US (occurrence: None)
  Receive Date: 20221031
  Receipt Date: 20221031
  Transmission Date: 20230113
  Serious: Yes (Hospitalization)
  Sender: FDA-Public Use
  Company Number: None

PATIENT

DRUGS (1)
  1. WARFARIN [Suspect]
     Active Substance: WARFARIN

REACTIONS (5)
  - Cardiac failure congestive [None]
  - Therapy interrupted [None]
  - Epistaxis [None]
  - Haemorrhage [None]
  - Adverse drug reaction [None]

NARRATIVE: CASE EVENT DATE: 20220307
